FAERS Safety Report 21721091 (Version 1)
Quarter: 2022Q4

REPORT INFORMATION
  Report Type: Spontaneous
  Country: US (occurrence: None)
  Receive Date: 20221212
  Receipt Date: 20221212
  Transmission Date: 20230112
  Serious: Yes (Other)
  Sender: FDA-Public Use
  Company Number: None

PATIENT
  Age: 7 Year
  Sex: Female
  Weight: 22.95 kg

DRUGS (2)
  1. OSELTAMIVIR PHOSPHATE [Suspect]
     Active Substance: OSELTAMIVIR PHOSPHATE
     Indication: Influenza
     Dosage: OTHER QUANTITY : 7.5 ML;?FREQUENCY : TWICE A DAY;?
     Route: 048
     Dates: start: 20221205, end: 20221210
  2. Childrens multivitamin [Concomitant]

REACTIONS (3)
  - Defiant behaviour [None]
  - Behaviour disorder [None]
  - Aggression [None]

NARRATIVE: CASE EVENT DATE: 20221206
